FAERS Safety Report 9870856 (Version 1)
Quarter: 2014Q1

REPORT INFORMATION
  Report Type: Spontaneous
  Country: ZA (occurrence: ZA)
  Receive Date: 20140205
  Receipt Date: 20140205
  Transmission Date: 20141002
  Serious: Yes (Hospitalization, Other)
  Sender: FDA-Public Use
  Company Number: ZA-PFIZER INC-2014031183

PATIENT
  Age: 57 Year
  Sex: Male

DRUGS (3)
  1. HYDROCORTISONE SODIUM SUCCINATE [Suspect]
     Indication: BRONCHOSPASM
     Dosage: UNK
     Route: 042
  2. THEOPHYLLINE [Concomitant]
     Indication: ASTHMA
     Dosage: UNK
     Route: 048
  3. SALBUTAMOL [Concomitant]
     Indication: ASTHMA
     Dosage: INHALER
     Route: 055

REACTIONS (2)
  - Respiratory arrest [Recovering/Resolving]
  - Bronchospasm [Recovering/Resolving]
